FAERS Safety Report 4807815-6 (Version None)
Quarter: 2005Q4

REPORT INFORMATION
  Report Type: 
  Country: None (occurrence: None)
  Receive Date: 20051020
  Receipt Date: 20051010
  Transmission Date: 20060501
  Serious: Yes (Hospitalization)
  Sender: FDA-Public Use
  Company Number: 2005136966

PATIENT
  Age: 34 Year
  Sex: Female

DRUGS (2)
  1. CELEBREX [Suspect]
     Indication: ADENOMATOUS POLYPOSIS COLI
     Dosage: 800 MG (400 MG, 2 IN 1 D), ORAL
     Route: 048
     Dates: start: 20040306, end: 20040606
  2. BLINDED THERAPY (BLINDED THERAPY) [Suspect]
     Indication: ADENOMATOUS POLYPOSIS COLI
     Dates: start: 20040306, end: 20040606

REACTIONS (3)
  - ASPARTATE AMINOTRANSFERASE INCREASED [None]
  - BILIARY DILATATION [None]
  - PANCREATITIS [None]
